FAERS Safety Report 7772223-5 (Version None)
Quarter: 2011Q3

REPORT INFORMATION
  Report Type: 
  Country: None (occurrence: None)
  Receive Date: 20110922
  Receipt Date: 20100115
  Transmission Date: 20111222
  Serious: No
  Sender: FDA-Public Use
  Company Number: US-ASTRAZENECA-2009SE13370

PATIENT
  Age: 60 Year
  Sex: Female
  Weight: 70.3 kg

DRUGS (2)
  1. THORAZINE [Concomitant]
  2. SEROQUEL [Suspect]
     Indication: SLEEP DISORDER
     Route: 048
     Dates: start: 20050101, end: 20080101

REACTIONS (5)
  - HYPERLIPIDAEMIA [None]
  - HYPERGLYCAEMIA [None]
  - TYPE 2 DIABETES MELLITUS [None]
  - OBESITY [None]
  - BLOOD CHOLESTEROL INCREASED [None]
